FAERS Safety Report 19065320 (Version 55)
Quarter: 2023Q4

REPORT INFORMATION
  Report Type: Report from Study
  Country: CO (occurrence: CO)
  Receive Date: 20210327
  Receipt Date: 20231228
  Transmission Date: 20240110
  Serious: Yes (Hospitalization, Other)
  Sender: FDA-Public Use
  Company Number: CO-TAKEDA-CO202015748

PATIENT
  Age: 70 Year
  Sex: Female
  Weight: 71 kg

DRUGS (6)
  1. VELAGLUCERASE ALFA [Suspect]
     Active Substance: VELAGLUCERASE ALFA
     Indication: Gaucher^s disease
     Dosage: 3600 INTERNATIONAL UNIT, Q2WEEKS
     Route: 042
     Dates: start: 20040601
  2. VELAGLUCERASE ALFA [Suspect]
     Active Substance: VELAGLUCERASE ALFA
     Indication: Mucolipidosis
  3. HYDROCHLOROTHIAZIDE [Concomitant]
     Active Substance: HYDROCHLOROTHIAZIDE
     Indication: Blood pressure abnormal
     Dosage: UNK
     Route: 048
  4. ENALAPRIL [Concomitant]
     Active Substance: ENALAPRIL
     Indication: Blood pressure abnormal
     Dosage: UNK
     Route: 048
  5. OMEPRAZOLE [Concomitant]
     Active Substance: OMEPRAZOLE
     Dosage: UNK
     Route: 065
  6. FLUOXETINE [Concomitant]
     Active Substance: FLUOXETINE HYDROCHLORIDE
     Dosage: UNK
     Route: 065

REACTIONS (74)
  - Clavicle fracture [Recovering/Resolving]
  - Hallucination, visual [Unknown]
  - Syncope [Recovering/Resolving]
  - Fall [Recovering/Resolving]
  - Seizure [Recovering/Resolving]
  - Cardiomegaly [Unknown]
  - Parkinson^s disease [Unknown]
  - Mood altered [Unknown]
  - Dementia [Unknown]
  - Cognitive disorder [Unknown]
  - Drug ineffective [Unknown]
  - Feeling abnormal [Not Recovered/Not Resolved]
  - Skin discolouration [Recovering/Resolving]
  - Pain [Recovering/Resolving]
  - Hernia pain [Unknown]
  - Nervous system disorder [Unknown]
  - Spinal osteoarthritis [Unknown]
  - Blood pressure decreased [Recovering/Resolving]
  - Treatment noncompliance [Unknown]
  - Urinary incontinence [Unknown]
  - Anal incontinence [Unknown]
  - Eating disorder [Unknown]
  - Loss of personal independence in daily activities [Unknown]
  - Bradyphrenia [Unknown]
  - Gait inability [Unknown]
  - Poor venous access [Unknown]
  - Presyncope [Unknown]
  - Speech disorder [Unknown]
  - Headache [Unknown]
  - Discouragement [Recovering/Resolving]
  - Depressed mood [Unknown]
  - Weight increased [Not Recovered/Not Resolved]
  - Illness [Unknown]
  - Influenza [Recovering/Resolving]
  - Discomfort [Recovered/Resolved]
  - Weight decreased [Unknown]
  - Tremor [Recovering/Resolving]
  - Amnesia [Recovering/Resolving]
  - Gastrointestinal injury [Recovered/Resolved]
  - Bedridden [Recovering/Resolving]
  - Feeling cold [Recovering/Resolving]
  - Muscle rigidity [Recovering/Resolving]
  - General physical health deterioration [Unknown]
  - Memory impairment [Unknown]
  - Osteoporosis [Unknown]
  - Malaise [Recovering/Resolving]
  - Ocular hyperaemia [Recovering/Resolving]
  - Mobility decreased [Not Recovered/Not Resolved]
  - Balance disorder [Not Recovered/Not Resolved]
  - Cough [Recovering/Resolving]
  - Lethargy [Not Recovered/Not Resolved]
  - Anxiety [Not Recovered/Not Resolved]
  - Gait disturbance [Recovered/Resolved]
  - Spinal pain [Unknown]
  - Body height decreased [Unknown]
  - Vaginal haemorrhage [Unknown]
  - Umbilical hernia [Unknown]
  - Musculoskeletal stiffness [Unknown]
  - Muscular weakness [Unknown]
  - Blood glucose increased [Unknown]
  - Platelet count decreased [Unknown]
  - Dizziness [Not Recovered/Not Resolved]
  - Abdominal pain upper [Recovered/Resolved]
  - Fatigue [Recovering/Resolving]
  - Hypertension [Unknown]
  - Bone pain [Not Recovered/Not Resolved]
  - Asthenia [Recovered/Resolved]
  - Nausea [Recovered/Resolved]
  - Abdominal pain [Recovering/Resolving]
  - Vomiting [Recovered/Resolved]
  - Product prescribing error [Unknown]
  - Product dose omission issue [Not Recovered/Not Resolved]
  - Incorrect dose administered [Unknown]
  - Inappropriate schedule of product administration [Unknown]

NARRATIVE: CASE EVENT DATE: 20200519
